FAERS Safety Report 23877995 (Version 3)
Quarter: 2024Q3

REPORT INFORMATION
  Report Type: Spontaneous
  Country: IT (occurrence: IT)
  Receive Date: 20240521
  Receipt Date: 20240708
  Transmission Date: 20241017
  Serious: Yes (Life-Threatening, Hospitalization, Disabling, Other)
  Sender: TAKEDA
  Company Number: IT-INCYTE CORPORATION-2024IN003351

PATIENT
  Age: 47 Year
  Sex: Male

DRUGS (3)
  1. ICLUSIG [Suspect]
     Active Substance: PONATINIB\PONATINIB HYDROCHLORIDE
     Indication: Philadelphia positive chronic myeloid leukaemia
     Dosage: 30 MILLIGRAM, QD
     Route: 048
     Dates: start: 201910, end: 20200623
  2. ICLUSIG [Suspect]
     Active Substance: PONATINIB\PONATINIB HYDROCHLORIDE
     Dosage: 15 MILLIGRAM, QD
     Route: 048
     Dates: start: 20200624, end: 20230706
  3. ATORVASTATIN [Concomitant]
     Active Substance: ATORVASTATIN
     Indication: Dyslipidaemia
     Dosage: 80 MILLIGRAM, QD
     Route: 048

REACTIONS (4)
  - Carotid artery occlusion [Recovered/Resolved with Sequelae]
  - Carotid arteriosclerosis [Recovered/Resolved with Sequelae]
  - Ischaemic stroke [Recovered/Resolved with Sequelae]
  - Follicular lymphoma recurrent [Unknown]

NARRATIVE: CASE EVENT DATE: 20230301
